FAERS Safety Report 5699268-3 (Version None)
Quarter: 2008Q2

REPORT INFORMATION
  Report Type: 
  Country: None (occurrence: None)
  Receive Date: 20080407
  Receipt Date: 20080407
  Transmission Date: 20081010
  Serious: No
  Sender: FDA-Public Use
  Company Number: None

PATIENT
  Age: 4 Year
  Sex: Male
  Weight: 29.4838 kg

DRUGS (2)
  1. SINGULAIR [Suspect]
     Indication: ASTHMA
     Dosage: ONE TABLET DAILY PO
     Route: 048
     Dates: start: 20070524, end: 20080327
  2. SINGULAIR [Suspect]
     Indication: RESPIRATORY DISORDER
     Dosage: ONE TABLET DAILY PO
     Route: 048
     Dates: start: 20070524, end: 20080327

REACTIONS (4)
  - ABNORMAL BEHAVIOUR [None]
  - AGGRESSION [None]
  - FEELING ABNORMAL [None]
  - SELF-INJURIOUS IDEATION [None]
